FAERS Safety Report 5724203-9 (Version None)
Quarter: 2008Q2

REPORT INFORMATION
  Report Type: 
  Country: None (occurrence: None)
  Receive Date: 20080428
  Receipt Date: 20080415
  Transmission Date: 20081010
  Serious: Yes (Hospitalization)
  Sender: FDA-Public Use
  Company Number: 2008AL002304

PATIENT
  Sex: Male

DRUGS (3)
  1. IBUPROFEN ORAL SUSPENSION USP, 100 MG/5 ML (RX) (ALPHARMA) (IBUPROFEN [Suspect]
     Indication: JUVENILE ARTHRITIS
     Dosage: 8 MG/KG;TID;
  2. ASPIRIN [Concomitant]
  3. IMMUNE GLOBULIN (HUMAN) [Concomitant]

REACTIONS (5)
  - CORONARY ARTERY OCCLUSION [None]
  - CORONARY ARTERY STENOSIS [None]
  - CORONARY ARTERY THROMBOSIS [None]
  - LEFT VENTRICULAR DYSFUNCTION [None]
  - SCAN MYOCARDIAL PERFUSION ABNORMAL [None]
